FAERS Safety Report 4972976-5 (Version None)
Quarter: 2006Q2

REPORT INFORMATION
  Report Type: 
  Country: None (occurrence: None)
  Receive Date: 20060414
  Receipt Date: 20060411
  Transmission Date: 20061013
  Serious: Yes (Other)
  Sender: FDA-Public Use
  Company Number: US-GLAXOSMITHKLINE-A0601375A

PATIENT
  Age: 69 Year
  Sex: Male

DRUGS (3)
  1. AVANDIA [Suspect]
     Indication: DIABETES MELLITUS NON-INSULIN-DEPENDENT
     Dosage: 2MG TWICE PER DAY
     Route: 048
     Dates: end: 20060301
  2. TRANXENE [Concomitant]
  3. ANTIHYPERTENSIVE [Concomitant]

REACTIONS (3)
  - ATONIC URINARY BLADDER [None]
  - INCONTINENCE [None]
  - MUSCULOSKELETAL STIFFNESS [None]
